FAERS Safety Report 10508024 (Version 1)
Quarter: 2014Q4

REPORT INFORMATION
  Report Type: Spontaneous
  Country: US (occurrence: US)
  Receive Date: 20141009
  Receipt Date: 20141009
  Transmission Date: 20150528
  Serious: Yes (Other)
  Sender: FDA-Public Use
  Company Number: US-ASTELLAS-2014US010717

PATIENT
  Sex: Male

DRUGS (1)
  1. MYRBETRIQ [Suspect]
     Active Substance: MIRABEGRON
     Indication: PRODUCT USED FOR UNKNOWN INDICATION
     Route: 065
     Dates: start: 20140808

REACTIONS (4)
  - Drug effect incomplete [Unknown]
  - Bladder spasm [Unknown]
  - Urinary retention [Unknown]
  - Micturition urgency [Unknown]

NARRATIVE: CASE EVENT DATE: 201408
